FAERS Safety Report 24836859 (Version 1)
Quarter: 2025Q1

REPORT INFORMATION
  Report Type: Report from Study
  Country: US (occurrence: US)
  Receive Date: 20250113
  Receipt Date: 20250113
  Transmission Date: 20250409
  Serious: Yes (Death, Hospitalization)
  Sender: BAYER HEALTHCARE PHARMACEUTICALS INC.
  Company Number: US-BAYER-2025A002296

PATIENT
  Sex: Female
  Weight: 52.154 kg

DRUGS (19)
  1. ADEMPAS [Suspect]
     Active Substance: RIOCIGUAT
     Indication: Pulmonary arterial hypertension
     Dates: start: 20230124
  2. ADEMPAS [Suspect]
     Active Substance: RIOCIGUAT
     Indication: Pulmonary arterial hypertension
     Dosage: 2.5 MG, TID
     Route: 048
  3. FUROSEMIDE [Concomitant]
     Active Substance: FUROSEMIDE
  4. BACTRIM DS [Concomitant]
     Active Substance: SULFAMETHOXAZOLE\TRIMETHOPRIM
  5. THIAMINE HYDROCHLORIDE [Concomitant]
     Active Substance: THIAMINE HYDROCHLORIDE
  6. TYLENOL EXTRA STRENGTH [Concomitant]
     Active Substance: ACETAMINOPHEN
  7. FLAGYL [Concomitant]
     Active Substance: METRONIDAZOLE\METRONIDAZOLE HYDROCHLORIDE
  8. PROTONIX [Concomitant]
     Active Substance: PANTOPRAZOLE SODIUM
  9. TEMAZEPAM [Concomitant]
     Active Substance: TEMAZEPAM
  10. VITAMIN D3 [Concomitant]
     Active Substance: CHOLECALCIFEROL
  11. WINREVAIR [Concomitant]
     Active Substance: SOTATERCEPT-CSRK
  12. LEVOFLOXACIN [Concomitant]
     Active Substance: LEVOFLOXACIN
  13. VITAMINS [Concomitant]
     Active Substance: VITAMINS
  14. PREDNISONE [Concomitant]
     Active Substance: PREDNISONE
  15. OXYGEN [Concomitant]
     Active Substance: OXYGEN
  16. ASPIRIN [Concomitant]
     Active Substance: ASPIRIN
  17. METRONIDAZOLE [Concomitant]
     Active Substance: METRONIDAZOLE
  18. METAMUCIL [Concomitant]
     Active Substance: PLANTAGO SEED
  19. TYVASO [Concomitant]
     Active Substance: TREPROSTINIL

REACTIONS (3)
  - Death [Fatal]
  - Hospitalisation [None]
  - Malaise [None]
